FAERS Safety Report 9580030 (Version 1)
Quarter: 2013Q4

REPORT INFORMATION
  Report Type: Spontaneous
  Country: US (occurrence: US)
  Receive Date: 20131002
  Receipt Date: 20131002
  Transmission Date: 20140711
  Serious: Yes (Hospitalization)
  Sender: FDA-Public Use
  Company Number: US-BAYER-2013-118743

PATIENT
  Age: 34 Year
  Sex: Female
  Weight: 115.65 kg

DRUGS (1)
  1. YASMIN [Suspect]

REACTIONS (1)
  - Deep vein thrombosis [Recovered/Resolved]
